FAERS Safety Report 22608237 (Version 1)
Quarter: 2023Q2

REPORT INFORMATION
  Report Type: Spontaneous
  Country: US (occurrence: US)
  Receive Date: 20230616
  Receipt Date: 20230616
  Transmission Date: 20230721
  Serious: No
  Sender: FDA-Public Use
  Company Number: US-Bion-011727

PATIENT

DRUGS (1)
  1. NAPROXEN SODIUM [Suspect]
     Active Substance: NAPROXEN SODIUM
     Indication: Flatulence
     Dosage: 2 LIQUID GELS
     Route: 048

REACTIONS (1)
  - Off label use [Unknown]
